FAERS Safety Report 12445239 (Version 1)
Quarter: 2016Q2

REPORT INFORMATION
  Report Type: Report from Study
  Country: CA (occurrence: CA)
  Receive Date: 20160607
  Receipt Date: 20160607
  Transmission Date: 20160815
  Serious: Yes (Other)
  Sender: FDA-Public Use
  Company Number: CA-GILEAD-2016-0216452

PATIENT
  Age: 42 Year
  Sex: Male

DRUGS (1)
  1. LEDIPASVIR/SOFOSBUVIR [Suspect]
     Active Substance: LEDIPASVIR\SOFOSBUVIR
     Indication: CHRONIC HEPATITIS C
     Dosage: 1 DF, UNK
     Route: 048

REACTIONS (7)
  - Paraesthesia [Unknown]
  - Abdominal pain [Unknown]
  - Hallucination [Unknown]
  - Restlessness [Unknown]
  - Dyspepsia [Unknown]
  - Abnormal behaviour [Unknown]
  - Drug withdrawal syndrome [Unknown]
